FAERS Safety Report 16366273 (Version 2)
Quarter: 2023Q1

REPORT INFORMATION
  Report Type: Spontaneous
  Country: US (occurrence: US)
  Receive Date: 20190529
  Receipt Date: 20230123
  Transmission Date: 20230418
  Serious: Yes (Life-Threatening, Hospitalization, Other)
  Sender: FDA-Public Use
  Company Number: None

PATIENT
  Age: 8 Month
  Sex: Male

DRUGS (1)
  1. DURAGESIC [Suspect]
     Active Substance: FENTANYL
     Indication: Accidental exposure to product
     Dosage: A 25 ?G/H FENTANYL PATCH; FENTANYL PATCH WAS FOUND ADHERED TO HIS SOFT PALATE
     Route: 048

REACTIONS (18)
  - Brain oedema [Recovering/Resolving]
  - Accidental exposure to product by child [Recovering/Resolving]
  - Neurotoxicity [Recovering/Resolving]
  - Encephalomalacia [Recovering/Resolving]
  - Bradycardia [Recovering/Resolving]
  - Brain herniation [Recovering/Resolving]
  - Gaze palsy [Recovering/Resolving]
  - Hydrocephalus [Recovering/Resolving]
  - Hypoxia [Recovering/Resolving]
  - Dysmetria [Recovering/Resolving]
  - Miosis [Recovering/Resolving]
  - Hypoglycaemia [Recovering/Resolving]
  - Apraxia [Recovering/Resolving]
  - Hypokinesia [Recovering/Resolving]
  - Somnolence [Recovering/Resolving]
  - Accidental overdose [Recovering/Resolving]
  - Toxicity to various agents [Recovering/Resolving]
  - Incorrect route of product administration [Unknown]
